FAERS Safety Report 5319100-7 (Version None)
Quarter: 2007Q2

REPORT INFORMATION
  Report Type: 
  Country: None (occurrence: None)
  Receive Date: 20070508
  Receipt Date: 20070504
  Transmission Date: 20071010
  Serious: Yes (Other)
  Sender: FDA-Public Use
  Company Number: A0648547A

PATIENT
  Age: 43 Year
  Sex: Male
  Weight: 84.5 kg

DRUGS (8)
  1. ADVAIR DISKUS 100/50 [Suspect]
     Indication: ASTHMA
     Route: 055
     Dates: start: 20010409
  2. VOLMAX [Concomitant]
     Dosage: 8MG TWICE PER DAY
     Route: 048
  3. SINGULAIR [Concomitant]
     Dosage: 10MG AT NIGHT
  4. ALBUTEROL [Concomitant]
     Route: 055
  5. ZYRTEC [Concomitant]
     Dosage: 10MG AS REQUIRED
     Route: 048
  6. MUCINEX [Concomitant]
     Dosage: 600MG AS REQUIRED
     Route: 048
  7. VERAPAMIL [Concomitant]
     Dosage: 180MG PER DAY
     Route: 048
  8. UNKNOWN MEDICATION [Concomitant]
     Route: 048

REACTIONS (2)
  - CHORIORETINOPATHY [None]
  - RETINOPATHY [None]
